FAERS Safety Report 6801026-0 (Version None)
Quarter: 2010Q2

REPORT INFORMATION
  Report Type: 
  Country: None (occurrence: None)
  Receive Date: 20100629
  Receipt Date: 20100616
  Transmission Date: 20101027
  Serious: Yes (Other)
  Sender: FDA-Public Use
  Company Number: PHHY2010BE35359

PATIENT
  Sex: Female
  Weight: 56 kg

DRUGS (1)
  1. ACLASTA [Suspect]
     Indication: OSTEOPOROSIS
     Dosage: 5 MG, UNK
     Route: 042
     Dates: start: 20090701

REACTIONS (12)
  - APHAGIA [None]
  - ARTHRALGIA [None]
  - ERYTHEMA [None]
  - GINGIVAL DISORDER [None]
  - LOOSE TOOTH [None]
  - ORAL DISORDER [None]
  - ORAL PUSTULE [None]
  - OSTEONECROSIS OF JAW [None]
  - PAIN [None]
  - PERIODONTITIS [None]
  - SWELLING [None]
  - TOOTH EXTRACTION [None]
